FAERS Safety Report 15120279 (Version 1)
Quarter: 2018Q3

REPORT INFORMATION
  Report Type: Spontaneous
  Country: US (occurrence: US)
  Receive Date: 20180613
  Receipt Date: 20180613
  Transmission Date: 20181010
  Serious: No
  Sender: FDA-Public Use
  Company Number: None

PATIENT
  Age: 67 Year
  Sex: Female
  Weight: 99.79 kg

DRUGS (2)
  1. DULOXETINE 30MG [Suspect]
     Active Substance: DULOXETINE
     Indication: MAJOR DEPRESSION
     Dates: start: 20180215, end: 20180323
  2. DULOXETINE 60MG [Suspect]
     Active Substance: DULOXETINE
     Dates: start: 20180215, end: 20180323

REACTIONS (2)
  - Product substitution issue [None]
  - Depression [None]

NARRATIVE: CASE EVENT DATE: 20180315
